FAERS Safety Report 9051966 (Version 1)
Quarter: 2013Q1

REPORT INFORMATION
  Report Type: Spontaneous
  Country: US (occurrence: None)
  Receive Date: 20130130
  Receipt Date: 20130130
  Transmission Date: 20140127
  Serious: Yes (Other)
  Sender: FDA-Public Use
  Company Number: None

PATIENT
  Sex: Female

DRUGS (1)
  1. BUDESONIDE [Suspect]
     Indication: EOSINOPHILIC COLITIS

REACTIONS (3)
  - Rash erythematous [None]
  - Pain [None]
  - Drug resistance [None]
